FAERS Safety Report 17521778 (Version 1)
Quarter: 2020Q1

REPORT INFORMATION
  Report Type: Spontaneous
  Country: FR (occurrence: FR)
  Receive Date: 20200310
  Receipt Date: 20200310
  Transmission Date: 20200409
  Serious: Yes (Hospitalization)
  Sender: FDA-Public Use
  Company Number: FR-SA-2020SA057224

PATIENT
  Age: 55 Year
  Sex: Male

DRUGS (13)
  1. DEXCHLORPHENIRAMINE MALEATE. [Suspect]
     Active Substance: DEXCHLORPHENIRAMINE MALEATE
     Indication: ALLERGY PROPHYLAXIS
     Dosage: 5 MG, QCY
     Route: 042
     Dates: start: 20200129, end: 20200129
  2. PACLITAXEL. [Suspect]
     Active Substance: PACLITAXEL
     Indication: LUNG ADENOCARCINOMA
     Dosage: 155 MG, 1X
     Route: 041
     Dates: start: 20200129, end: 20200129
  3. OXYCONTIN [Concomitant]
     Active Substance: OXYCODONE HYDROCHLORIDE
     Dosage: 1 DF, BID
     Route: 048
  4. OXYCONTIN [Concomitant]
     Active Substance: OXYCODONE HYDROCHLORIDE
     Dosage: 1 DF, BID
     Route: 048
  5. DOLIPRANE [Concomitant]
     Active Substance: ACETAMINOPHEN
     Dosage: 3 DF, QD
     Route: 048
  6. TRANSIPEGLIB [Concomitant]
     Active Substance: POLYETHYLENE GLYCOL 3350
     Dosage: 3 DF, QD, IF NECESSARY
  7. BI-PROFENID [Concomitant]
     Active Substance: KETOPROFEN
     Dosage: 1 DF, BID
  8. RANITIDINE HYDROCHLORIDE. [Suspect]
     Active Substance: RANITIDINE HYDROCHLORIDE
     Indication: ALLERGY PROPHYLAXIS
     Dosage: 50 MG, QCY
     Route: 042
     Dates: start: 20200129, end: 20200129
  9. INEXIUM [ESOMEPRAZOLE SODIUM] [Concomitant]
     Active Substance: ESOMEPRAZOLE SODIUM
     Dosage: 1 DF, QD
     Route: 048
  10. PREGABALINE ARROW [Concomitant]
     Active Substance: PREGABALIN
     Dosage: 1 DF, BID
     Route: 048
  11. DOMPERIDONE BIOGARAN [Concomitant]
     Active Substance: DOMPERIDONE
     Dosage: 1 DF, TID
     Route: 048
  12. DEXAMETHASONE. [Suspect]
     Active Substance: DEXAMETHASONE
     Indication: ALLERGY PROPHYLAXIS
     Dosage: 8 MG, QCY
     Route: 042
     Dates: start: 20200129, end: 20200129
  13. OXYNORM [Concomitant]
     Active Substance: OXYCODONE HYDROCHLORIDE
     Dosage: 6 DF, QD, IF NECESSARY

REACTIONS (5)
  - Cough [Recovered/Resolved]
  - Erythema [Recovered/Resolved]
  - Chest pain [Recovered/Resolved]
  - Hypersensitivity [Recovered/Resolved]
  - Feeling hot [Recovered/Resolved]

NARRATIVE: CASE EVENT DATE: 20200129
